FAERS Safety Report 9753719 (Version 1)
Quarter: 2013Q4

REPORT INFORMATION
  Report Type: Spontaneous
  Country: GB (occurrence: None)
  Receive Date: 20131211
  Receipt Date: 20131211
  Transmission Date: 20140711
  Serious: Yes (Other)
  Sender: FDA-Public Use
  Company Number: SYM-2013-13687

PATIENT
  Age: 52 Year
  Sex: Female

DRUGS (1)
  1. METRONIDAZOLE [Suspect]
     Indication: INFECTION
     Route: 048
     Dates: start: 20131111, end: 20131115

REACTIONS (4)
  - Fatigue [None]
  - Hunger [None]
  - Headache [None]
  - Blood glucose decreased [None]
